FAERS Safety Report 4521257-2 (Version None)
Quarter: 2004Q4

REPORT INFORMATION
  Report Type: 
  Country: None (occurrence: None)
  Receive Date: 20041203
  Receipt Date: 20041124
  Transmission Date: 20050328
  Serious: Yes (Disabling)
  Sender: FDA-Public Use
  Company Number: K200401810

PATIENT
  Age: 57 Year
  Sex: Male

DRUGS (5)
  1. ALTACE [Suspect]
     Indication: HYPERTENSION
     Dosage: 5 MG, QD, ORAL
     Route: 048
     Dates: start: 20031001, end: 20040501
  2. LASIX [Concomitant]
  3. ATORVASTATIN CALCIUM [Concomitant]
  4. ALLOPURINOL [Concomitant]
  5. METOHEXAL (METOPROLOL TARTRATE) [Concomitant]

REACTIONS (1)
  - GYNAECOMASTIA [None]
